FAERS Safety Report 8486573-0 (Version None)
Quarter: 2012Q3

REPORT INFORMATION
  Report Type: 
  Country: None (occurrence: None)
  Receive Date: 20120703
  Receipt Date: 20120628
  Transmission Date: 20120928
  Serious: Yes (Death, Hospitalization, Other)
  Sender: FDA-Public Use
  Company Number: FR-ELI_LILLY_AND_COMPANY-FR201206009251

PATIENT
  Age: 73 Year
  Sex: Male

DRUGS (8)
  1. INSULATARD NPH HUMAN [Concomitant]
  2. VALSARTAN  AND HYDROCHLOROTHIAZIDE [Concomitant]
  3. BYETTA [Suspect]
     Indication: TYPE 2 DIABETES MELLITUS
     Dosage: 10 UG, BID
     Route: 058
     Dates: start: 20090101, end: 20120620
  4. PENTOXIFYLLINE [Concomitant]
  5. CRESTOR [Concomitant]
  6. HUMALOG [Concomitant]
  7. NITROGLYCERIN [Concomitant]
  8. ALLOPURINOL [Concomitant]

REACTIONS (1)
  - HEPATIC NEOPLASM MALIGNANT [None]
